FAERS Safety Report 5475614-0 (Version None)
Quarter: 2007Q4

REPORT INFORMATION
  Report Type: 
  Country: None (occurrence: None)
  Receive Date: 20071003
  Receipt Date: 20070526
  Transmission Date: 20080405
  Serious: No
  Sender: FDA-Public Use
  Company Number: US-KINGPHARMUSA00001-K200700652

PATIENT

DRUGS (2)
  1. SONATA [Suspect]
     Indication: INSOMNIA
     Dosage: 10 MG, QD
     Route: 048
     Dates: start: 20070517
  2. LOMOTIL /00034001/ [Concomitant]
     Indication: DIARRHOEA
     Dosage: 1 TABLET, PRN

REACTIONS (1)
  - MIDDLE INSOMNIA [None]
